FAERS Safety Report 8561349-4 (Version None)
Quarter: 2012Q3

REPORT INFORMATION
  Report Type: 
  Country: None (occurrence: None)
  Receive Date: 20120802
  Receipt Date: 20120731
  Transmission Date: 20120928
  Serious: Yes (Other)
  Sender: FDA-Public Use
  Company Number: PHHY2012BR066472

PATIENT
  Age: 15 Year
  Sex: Female

DRUGS (1)
  1. CATAFLAM [Suspect]
     Dosage: 50 MG, UNK
     Route: 048

REACTIONS (4)
  - DYSPHAGIA [None]
  - PHARYNGEAL OEDEMA [None]
  - OROPHARYNGEAL PAIN [None]
  - PYREXIA [None]
